FAERS Safety Report 25236528 (Version 4)
Quarter: 2025Q4

REPORT INFORMATION
  Report Type: Report from Study
  Country: US (occurrence: US)
  Receive Date: 20250424
  Receipt Date: 20251231
  Transmission Date: 20260118
  Serious: Yes (Hospitalization)
  Sender: PFIZER
  Company Number: US-PFIZER INC-PV202500048336

PATIENT
  Age: 77 Year
  Sex: Female

DRUGS (4)
  1. IBRANCE [Suspect]
     Active Substance: PALBOCICLIB
     Indication: Breast cancer female
     Dosage: 100 MG, CYCLIC (21 DAYS ON AND 7 DAYS OFF)
  2. SIMETHICONE (DIMETHICONE) [Concomitant]
     Active Substance: DIMETHICONE
     Indication: Dyspepsia
     Dosage: UNK
  3. LISINOPRIL [Concomitant]
     Active Substance: LISINOPRIL
     Indication: Hypertension
     Dosage: 20 MG
  4. LISINOPRIL [Concomitant]
     Active Substance: LISINOPRIL
     Dosage: 10 MG

REACTIONS (13)
  - Upper respiratory tract infection [Unknown]
  - Therapeutic response unexpected [Unknown]
  - Vomiting [Unknown]
  - Full blood count decreased [Unknown]
  - Alopecia [Unknown]
  - Fatigue [Unknown]
  - Platelet count decreased [Unknown]
  - Dizziness [Unknown]
  - Diarrhoea [Unknown]
  - Hypotension [Unknown]
  - Weight decreased [Unknown]
  - Illness [Unknown]
  - White blood cell count abnormal [Unknown]
